FAERS Safety Report 4427799-2 (Version None)
Quarter: 2004Q3

REPORT INFORMATION
  Report Type: 
  Country: None (occurrence: None)
  Receive Date: 20040816
  Receipt Date: 20040816
  Transmission Date: 20050211
  Serious: No
  Sender: FDA-Public Use
  Company Number: None

PATIENT
  Age: 12 Year
  Sex: Female
  Weight: 39.9165 kg

DRUGS (1)
  1. EXTRA STRENGTH TYLENOL [Suspect]
     Dosage: 2 500 MG CAP ONE TIME ORAL

REACTIONS (2)
  - MEDICATION ERROR [None]
  - OVERDOSE [None]
